FAERS Safety Report 4888166-0 (Version None)
Quarter: 2006Q1

REPORT INFORMATION
  Report Type: 
  Country: None (occurrence: None)
  Receive Date: 20060119
  Receipt Date: 20060106
  Transmission Date: 20060701
  Serious: Yes (Other)
  Sender: FDA-Public Use
  Company Number: 2006005976

PATIENT
  Sex: Female
  Weight: 68.0396 kg

DRUGS (7)
  1. CELEBREX [Suspect]
     Indication: ARTHRITIS
     Dosage: 200 MG
     Dates: start: 19990101
  2. GABAPENTIN [Suspect]
     Indication: PAIN
     Dosage: 900 MG (300 MG 3 IN 1 D)
     Dates: start: 20050501
  3. SOMA COMPOUND ^HORNER^ (CAFFIENE, CARISOPRODOL, PHENACETIN) [Concomitant]
  4. PREMPRO [Concomitant]
  5. ASPIRIN [Concomitant]
  6. NORVASC [Suspect]
     Indication: HYPERTENSION
     Dates: start: 20000101
  7. BEXTRA [Suspect]
     Indication: ARTHRITIS
     Dosage: 40 MG (20 MG 2 IN 1D)

REACTIONS (15)
  - ARTHRITIS [None]
  - ASTHENIA [None]
  - BACK PAIN [None]
  - CONDITION AGGRAVATED [None]
  - DEFORMITY [None]
  - FEELING ABNORMAL [None]
  - HYPERTENSION [None]
  - HYPOAESTHESIA [None]
  - NECK PAIN [None]
  - PAIN IN EXTREMITY [None]
  - POSTOPERATIVE WOUND INFECTION [None]
  - PROCEDURAL PAIN [None]
  - SCAR [None]
  - SHOULDER PAIN [None]
  - SPINAL COLUMN STENOSIS [None]
